FAERS Safety Report 6686680-9 (Version None)
Quarter: 2010Q2

REPORT INFORMATION
  Report Type: 
  Country: None (occurrence: None)
  Receive Date: 20100419
  Receipt Date: 20100409
  Transmission Date: 20101027
  Serious: Yes (Other)
  Sender: FDA-Public Use
  Company Number: HQWYE410023JUL04

PATIENT
  Sex: Female

DRUGS (2)
  1. PREMPRO [Suspect]
     Indication: HORMONE REPLACEMENT THERAPY
  2. CONJUGATED ESTROGENS [Suspect]
     Indication: HORMONE REPLACEMENT THERAPY

REACTIONS (5)
  - CONDITION AGGRAVATED [None]
  - HEADACHE [None]
  - MOOD SWINGS [None]
  - SYSTEMIC LUPUS ERYTHEMATOSUS [None]
  - VULVOVAGINAL DISCOMFORT [None]
